FAERS Safety Report 5464583-5 (Version None)
Quarter: 2007Q3

REPORT INFORMATION
  Report Type: 
  Country: None (occurrence: None)
  Receive Date: 20070820
  Receipt Date: 20070525
  Transmission Date: 20080115
  Serious: No
  Sender: FDA-Public Use
  Company Number: WAES 0705USA05313

PATIENT
  Sex: 0

DRUGS (6)
  1. JANUVIA [Suspect]
     Dosage: 100 MG/DAILY/PO
     Route: 048
  2. ACTOS [Concomitant]
  3. BENAZEPRIL HYDROCHLORIDE [Concomitant]
  4. GLIMEPIRIDE [Concomitant]
  5. LOVASTATIN [Concomitant]
  6. METFORMIN [Concomitant]

REACTIONS (2)
  - IRRITABILITY [None]
  - MOOD ALTERED [None]
